FAERS Safety Report 8044581-8 (Version None)
Quarter: 2012Q1

REPORT INFORMATION
  Report Type: 
  Country: None (occurrence: None)
  Receive Date: 20120113
  Receipt Date: 20120113
  Transmission Date: 20120608
  Serious: Yes (Life-Threatening, Hospitalization, Disabling)
  Sender: FDA-Public Use
  Company Number: None

PATIENT
  Age: 5 Year
  Sex: Male
  Weight: 21.772 kg

DRUGS (2)
  1. ANIMAS 202 [Suspect]
     Dates: start: 20080301, end: 20110823
  2. INSULIN [Concomitant]

REACTIONS (4)
  - INCORRECT DOSE ADMINISTERED BY DEVICE [None]
  - DEVICE INFORMATION OUTPUT ISSUE [None]
  - MEDICATION ERROR [None]
  - OVERDOSE [None]
